FAERS Safety Report 4426705-4 (Version None)
Quarter: 2004Q3

REPORT INFORMATION
  Report Type: 
  Country: None (occurrence: None)
  Receive Date: 20040811
  Receipt Date: 20040722
  Transmission Date: 20050211
  Serious: Yes (Hospitalization, Other)
  Sender: FDA-Public Use
  Company Number: USA040773377

PATIENT
  Age: 52 Year
  Sex: Female

DRUGS (2)
  1. ZYPREXA [Suspect]
     Indication: NERVOUSNESS
     Dosage: 20 MG DAY
     Route: 048
     Dates: start: 19960101, end: 20040101
  2. KLONOPIN [Concomitant]

REACTIONS (7)
  - BLOOD ELECTROLYTES ABNORMAL [None]
  - BLOOD SODIUM ABNORMAL [None]
  - COMA [None]
  - DIABETES INSIPIDUS [None]
  - DIABETES MELLITUS [None]
  - FALL [None]
  - PITUITARY TUMOUR [None]
